FAERS Safety Report 8577361 (Version 2)
Quarter: 2012Q4

REPORT INFORMATION
  Report Type: 
  Country: US (occurrence: US)
  Receive Date: 20120524
  Receipt Date: 20120830
  Transmission Date: 20130627
  Serious: Yes (Hospitalization, Other)
  Sender: FDA-Public Use
  Company Number: US-BAYER-2012-050145

PATIENT
  Age: 21 Year
  Sex: Female
  Weight: 70.3 kg

DRUGS (5)
  1. YAZ [Suspect]
     Dosage: UNK
     Dates: start: 200908, end: 201202
  2. PRED FORTE [Concomitant]
     Dosage: 1 drop in operated eye/four times a day for seven days
     Route: 047
     Dates: start: 20110816
  3. PERCOCET [Concomitant]
  4. IBUPROFEN [Concomitant]
  5. COLACE [Concomitant]

REACTIONS (11)
  - Gallbladder disorder [None]
  - Cholecystitis chronic [None]
  - Vascular rupture [None]
  - Procedural haemorrhage [None]
  - Nerve injury [None]
  - Pain [None]
  - Emotional distress [None]
  - Injury [None]
  - General physical health deterioration [None]
  - Anxiety [None]
  - Anhedonia [None]
